FAERS Safety Report 5737253-3 (Version None)
Quarter: 2008Q2

REPORT INFORMATION
  Report Type: 
  Country: None (occurrence: None)
  Receive Date: 20080512
  Receipt Date: 20080512
  Transmission Date: 20081010
  Serious: Yes (Other)
  Sender: FDA-Public Use
  Company Number: None

PATIENT
  Age: 39 Year
  Sex: Female
  Weight: 47.6277 kg

DRUGS (1)
  1. CREST  PRO HEALTH RINSE CREST [Suspect]
     Indication: DENTAL DISORDER PROPHYLAXIS
     Dosage: 1 TSP -SMALL AMOUNT-2/DAY, FOR 30 SEC DENTAL
     Route: 004
     Dates: start: 20070101, end: 20080101

REACTIONS (3)
  - PHARMACEUTICAL PRODUCT COMPLAINT [None]
  - TONGUE DISCOLOURATION [None]
  - TOOTH DISCOLOURATION [None]
